FAERS Safety Report 8711478 (Version 2)
Quarter: 2012Q4

REPORT INFORMATION
  Report Type: 
  Country: MX (occurrence: MX)
  Receive Date: 20120806
  Receipt Date: 20120904
  Transmission Date: 20130627
  Serious: Yes (Death, Hospitalization, Other)
  Sender: FDA-Public Use
  Company Number: PHHY2012MX067169

PATIENT
  Age: 68 Year
  Sex: Female

DRUGS (1)
  1. ONBREZ [Suspect]
     Indication: CHRONIC OBSTRUCTIVE PULMONARY DISEASE
     Dosage: 150 ug, QD
     Dates: start: 2010

REACTIONS (4)
  - Death [Fatal]
  - Dyspnoea [Unknown]
  - Cardiac disorder [Unknown]
  - Oxygen saturation decreased [None]
